FAERS Safety Report 19091436 (Version 6)
Quarter: 2021Q4

REPORT INFORMATION
  Report Type: Report from Study
  Country: US (occurrence: US)
  Receive Date: 20210405
  Receipt Date: 20211005
  Transmission Date: 20220304
  Serious: Yes (Hospitalization, Other)
  Sender: FDA-Public Use
  Company Number: US-BIOVITRUM-2021US3165

PATIENT
  Age: 26 Year
  Sex: Female

DRUGS (2)
  1. KINERET [Suspect]
     Active Substance: ANAKINRA
     Indication: Autoinflammatory disease
     Route: 058
     Dates: start: 20210311
  2. KINERET [Suspect]
     Active Substance: ANAKINRA
     Route: 058
     Dates: start: 20210312

REACTIONS (20)
  - Unresponsive to stimuli [Unknown]
  - Cardiac arrest [Unknown]
  - Pericarditis [Unknown]
  - Syncope [Unknown]
  - Pneumonia [Unknown]
  - Haemoglobin decreased [Unknown]
  - Laboratory test abnormal [Unknown]
  - Autoinflammatory disease [Unknown]
  - Condition aggravated [Unknown]
  - Electrocardiogram abnormal [Unknown]
  - Musculoskeletal chest pain [Unknown]
  - Autoinflammatory disease [Unknown]
  - Condition aggravated [Unknown]
  - Pyrexia [Unknown]
  - Pain [Unknown]
  - Infection [Unknown]
  - Fall [Unknown]
  - Injection site pain [Unknown]
  - Product dose omission issue [Unknown]
  - Off label use [Unknown]

NARRATIVE: CASE EVENT DATE: 20210311
